FAERS Safety Report 5903106-0 (Version None)
Quarter: 2008Q3

REPORT INFORMATION
  Report Type: 
  Country: None (occurrence: None)
  Receive Date: 20080926
  Receipt Date: 20080912
  Transmission Date: 20090109
  Serious: Yes (Hospitalization, Other)
  Sender: FDA-Public Use
  Company Number: JPI-P-004504

PATIENT
  Age: 30 Year
  Sex: Male

DRUGS (4)
  1. LUVOX [Suspect]
     Indication: SOCIAL PHOBIA
     Dosage: 50 MG (50 MG,1 IN 1 D),ORAL
     Route: 048
     Dates: start: 20070821, end: 20070914
  2. ETHYL LOFLAZEPATE(ETHYL LOFLAZEPATE) [Concomitant]
  3. CLONAZEPAM [Concomitant]
  4. SULPIRIDE (SULPIRIDE) [Concomitant]

REACTIONS (2)
  - DELIRIUM [None]
  - FRACTURED COCCYX [None]
